FAERS Safety Report 4434835-6 (Version None)
Quarter: 2004Q3

REPORT INFORMATION
  Report Type: 
  Country: None (occurrence: None)
  Receive Date: 20040726
  Receipt Date: 20040416
  Transmission Date: 20050211
  Serious: No
  Sender: FDA-Public Use
  Company Number: USA040259918

PATIENT
  Age: 41 Year
  Sex: Female
  Weight: 114 kg

DRUGS (3)
  1. FORTEO [Suspect]
     Indication: HYPOPARATHYROIDISM
     Dates: start: 20040201
  2. SYNTHROID [Concomitant]
  3. ROCALTROL [Concomitant]

REACTIONS (2)
  - INJECTION SITE ERYTHEMA [None]
  - PRESCRIBED OVERDOSE [None]
